FAERS Safety Report 12099551 (Version 1)
Quarter: 2016Q1

REPORT INFORMATION
  Report Type: Spontaneous
  Country: US (occurrence: None)
  Receive Date: 20160219
  Receipt Date: 20160219
  Transmission Date: 20160526
  Serious: Yes (Disabling)
  Sender: FDA-Public Use
  Company Number: None

PATIENT
  Age: 60 Year
  Sex: Female
  Weight: 77.11 kg

DRUGS (22)
  1. CRESTOR [Concomitant]
     Active Substance: ROSUVASTATIN CALCIUM
  2. REXULTI [Suspect]
     Active Substance: BREXPIPRAZOLE
     Indication: ANTIDEPRESSANT THERAPY
     Dosage: 1 PILL DOSE AT BEDTIME TAKEN BY MOUTH
     Route: 048
     Dates: start: 20160126, end: 20160210
  3. LEVOXYL [Concomitant]
     Active Substance: LEVOTHYROXINE SODIUM
  4. LUTEIN [Concomitant]
     Active Substance: LUTEIN
  5. ATIVAN [Concomitant]
     Active Substance: LORAZEPAM
  6. ENLYTE [Concomitant]
     Active Substance: CALCIUM ASCORBATE\CALCIUM THREONATE\COBALAMIN\COCARBOXYLASE\FERROUS GLUCONATE\FISH OIL\FLAVIN ADENINE DINUCLEOTIDE\FOLIC ACID\LEUCOVORIN CALCIUM\LEVOMEFOLIC ACID\METHYLCOBALAMIN\NADIDE\PYRIDOXAL 5-PHOSPHATE
  7. XANAX [Concomitant]
     Active Substance: ALPRAZOLAM
  8. ADVAIR HFA [Concomitant]
     Active Substance: FLUTICASONE PROPIONATE\SALMETEROL XINAFOATE
  9. GLUCOSAMINE CHONDROTIN [Concomitant]
     Active Substance: CHONDROITIN SULFATE (BOVINE)\GLUCOSAMINE SULFATE
  10. CALCIUM W/VIT D [Concomitant]
  11. FISH OIL [Concomitant]
     Active Substance: FISH OIL
  12. ALLEGRA [Concomitant]
     Active Substance: FEXOFENADINE HYDROCHLORIDE
  13. MAGNESIUM [Concomitant]
     Active Substance: MAGNESIUM
  14. PROZAC [Concomitant]
     Active Substance: FLUOXETINE HYDROCHLORIDE
  15. BUSPAR [Concomitant]
     Active Substance: BUSPIRONE HYDROCHLORIDE
  16. TRIAMTERENE AND HYDROCHLOROTHIAZIDE [Concomitant]
     Active Substance: HYDROCHLOROTHIAZIDE\TRIAMTERENE
  17. VITAMIN D3 [Concomitant]
     Active Substance: CHOLECALCIFEROL
  18. NUVIGIL [Concomitant]
     Active Substance: ARMODAFINIL
  19. DOXEPIN [Concomitant]
     Active Substance: DOXEPIN
  20. LOSARTAN. [Concomitant]
     Active Substance: LOSARTAN
  21. FLEXERIL [Suspect]
     Active Substance: CYCLOBENZAPRINE HYDROCHLORIDE
  22. COQ10 [Concomitant]
     Active Substance: UBIDECARENONE

REACTIONS (9)
  - Sinusitis [None]
  - Urinary hesitation [None]
  - Eye irritation [None]
  - Dental caries [None]
  - Dry mouth [None]
  - Ocular hyperaemia [None]
  - Corneal oedema [None]
  - Punctate keratitis [None]
  - Eye pain [None]

NARRATIVE: CASE EVENT DATE: 20160126
